FAERS Safety Report 4486661-X (Version None)
Quarter: 2004Q4

REPORT INFORMATION
  Report Type: 
  Country: None (occurrence: None)
  Receive Date: 20041027
  Receipt Date: 20041020
  Transmission Date: 20050328
  Serious: Yes (Hospitalization)
  Sender: FDA-Public Use
  Company Number: 200413977FR

PATIENT
  Age: 59 Year
  Sex: Male

DRUGS (2)
  1. FLAGYL [Suspect]
     Indication: GASTROENTERITIS
     Route: 048
     Dates: start: 20040925, end: 20040927
  2. AUGMENTIN '125' [Concomitant]
     Indication: GASTROENTERITIS
     Route: 042
     Dates: start: 20040625

REACTIONS (1)
  - PANCREATITIS ACUTE [None]
